FAERS Safety Report 4656621-4 (Version None)
Quarter: 2005Q2

REPORT INFORMATION
  Report Type: 
  Country: None (occurrence: None)
  Receive Date: 20050506
  Receipt Date: 20050425
  Transmission Date: 20051028
  Serious: Yes (Hospitalization)
  Sender: FDA-Public Use
  Company Number: 2005063978

PATIENT
  Sex: Female

DRUGS (18)
  1. VFEND [Suspect]
     Indication: ILL-DEFINED DISORDER
     Dosage: 800 MG (4X INTERVAL: EVERYDAY), INTRAVENOUS
     Route: 042
  2. DIFLUCAN [Suspect]
     Indication: ILL-DEFINED DISORDER
     Dosage: 200 MG (200 MG,ONCE INTERVAL:  EVERDAY),ORAL
     Route: 048
     Dates: start: 20050218
  3. MORPHINE [Suspect]
     Indication: ILL-DEFINED DISORDER
     Dosage: (ONCE INTERVAL: EVERYDAY),  INTRAVENOUS
     Route: 042
     Dates: start: 20050218, end: 20050301
  4. ACYCLOVIR [Suspect]
     Indication: TRANSPLANT
     Dosage: 800 MG (800 MG,  ONCE INTERVAL: EVERYDAY),ORAL
     Route: 048
     Dates: start: 20050214
  5. CEFEPIME  HYDROCHLORIDE (CEFEPIME HYDROCHLORIDE) [Suspect]
     Indication: BACTERIAL INFECTION
     Dosage: (2 GRAM, TID INTERVAL: EVERYDAY)
     Dates: start: 20050218
  6. CYCLOSPORINE [Suspect]
     Indication: TRANSPLANT
     Dosage: 240 MG (ONCE INTERVAL: EVERYDAY),ORAL
     Route: 048
     Dates: start: 20050216
  7. LORAZEPAM [Concomitant]
  8. CITALOPRAM HYDROBROMIDE [Concomitant]
  9. OMEPRAZOLE [Concomitant]
  10. HEPARIN [Concomitant]
  11. DEFIBROTIDE (DEFIBROTIDE) [Concomitant]
  12. ACETAMINOPHEN [Concomitant]
  13. METRONIDAZOLE [Concomitant]
  14. TEICOPLANIN (TEICOPLANIN) [Concomitant]
  15. LEUCOVORIN CALCIUM [Concomitant]
  16. METOCLOPRAMIDE HYDROCHLORIDE [Concomitant]
  17. SUCRALFATE [Concomitant]
  18. VORICONAZOLE (VORICONAZOLE) [Concomitant]

REACTIONS (8)
  - BRONCHOPULMONARY ASPERGILLOSIS [None]
  - CHOLESTASIS [None]
  - CONFUSIONAL STATE [None]
  - DISORIENTATION [None]
  - HALLUCINATION [None]
  - HALLUCINATIONS, MIXED [None]
  - SOMNOLENCE [None]
  - TRANSAMINASES ABNORMAL [None]
